FAERS Safety Report 5100512-1 (Version None)
Quarter: 2006Q3

REPORT INFORMATION
  Report Type: 
  Country: None (occurrence: None)
  Receive Date: 20060907
  Receipt Date: 20060907
  Transmission Date: 20061208
  Serious: Yes (Other)
  Sender: FDA-Public Use
  Company Number: None

PATIENT
  Sex: Male
  Weight: 97.0698 kg

DRUGS (2)
  1. ZOMETA [Suspect]
     Indication: MULTIPLE MYELOMA
     Dosage: 4 MG MONTHYLY IV DRIP
     Route: 041
     Dates: start: 20030613, end: 20060721
  2. THALIDIOMIDE 100 MG CELGENE [Suspect]
     Indication: MULTIPLE MYELOMA
     Dosage: 100 MG DAILY PO
     Route: 048
     Dates: start: 20030613

REACTIONS (2)
  - JAW DISORDER [None]
  - OSTEONECROSIS [None]
